FAERS Safety Report 8354868-7 (Version None)
Quarter: 2012Q2

REPORT INFORMATION
  Report Type: 
  Country: None (occurrence: None)
  Receive Date: 20120511
  Receipt Date: 20120501
  Transmission Date: 20120825
  Serious: Yes (Hospitalization, Other)
  Sender: FDA-Public Use
  Company Number: US-ROCHE-1024433

PATIENT
  Sex: Female

DRUGS (7)
  1. PROMETHAZINE [Concomitant]
  2. RIBAVIRIN [Concomitant]
  3. LAMICTAL [Concomitant]
  4. CELEXA [Concomitant]
  5. PEGASYS [Suspect]
     Indication: HEPATITIS C
     Route: 058
     Dates: start: 20111001, end: 20111004
  6. TRAZODONE HCL [Concomitant]
  7. IBUPROFEN [Concomitant]

REACTIONS (12)
  - LYMPHADENOPATHY [None]
  - PYREXIA [None]
  - VASCULAR RUPTURE [None]
  - OEDEMA PERIPHERAL [None]
  - PNEUMONIA [None]
  - MENINGITIS [None]
  - STOMATITIS [None]
  - DYSPHONIA [None]
  - BLOOD TEST ABNORMAL [None]
  - HORDEOLUM [None]
  - COMA [None]
  - FATIGUE [None]
